FAERS Safety Report 9013485 (Version 1)
Quarter: 2013Q1

REPORT INFORMATION
  Report Type: Spontaneous
  Country: US (occurrence: None)
  Receive Date: 20130107
  Receipt Date: 20130107
  Transmission Date: 20140127
  Serious: Yes (Hospitalization)
  Sender: FDA-Public Use
  Company Number: None

PATIENT
  Age: 49 Year
  Sex: Male
  Weight: 67.7 kg

DRUGS (2)
  1. SERTRALINE [Suspect]
     Indication: DEPRESSION
     Route: 048
     Dates: start: 20120822
  2. TRAZODONE [Suspect]
     Route: 048
     Dates: start: 20120905, end: 20121031

REACTIONS (3)
  - Cough [None]
  - Tachycardia [None]
  - Serotonin syndrome [None]
